FAERS Safety Report 7595859-3 (Version None)
Quarter: 2011Q3

REPORT INFORMATION
  Report Type: 
  Country: None (occurrence: None)
  Receive Date: 20110707
  Receipt Date: 20110705
  Transmission Date: 20111222
  Serious: No
  Sender: FDA-Public Use
  Company Number: US-PFIZER INC-2011150542

PATIENT
  Sex: Female
  Weight: 72.562 kg

DRUGS (2)
  1. ZOLOFT [Suspect]
     Indication: PSYCHOTHERAPY
     Dosage: 0.5 MG, 1X/DAY
     Route: 048
     Dates: start: 20110609
  2. LYRICA [Suspect]
     Indication: FIBROMYALGIA
     Dosage: 50 MG, 2X/DAY
     Route: 048
     Dates: start: 20110609

REACTIONS (1)
  - DIARRHOEA [None]
